FAERS Safety Report 7539526-0 (Version None)
Quarter: 2011Q2

REPORT INFORMATION
  Report Type: 
  Country: None (occurrence: None)
  Receive Date: 20110610
  Receipt Date: 20110602
  Transmission Date: 20111010
  Serious: Yes (Hospitalization)
  Sender: FDA-Public Use
  Company Number: JP-SANOFI-AVENTIS-2011SA026028

PATIENT
  Age: 66 Year
  Sex: Female
  Weight: 65 kg

DRUGS (17)
  1. VOLTAREN [Concomitant]
     Route: 054
     Dates: start: 20110321, end: 20110322
  2. FAMOTIDINE [Suspect]
     Route: 048
     Dates: start: 20110321, end: 20110414
  3. CEFOTIAM HYDROCHLORIDE [Suspect]
     Indication: INFECTION PROPHYLAXIS
     Route: 041
     Dates: start: 20110316, end: 20110424
  4. ENOXAPARIN SODIUM [Concomitant]
     Indication: THROMBOSIS PROPHYLAXIS
     Route: 065
     Dates: start: 20040321, end: 20110322
  5. FAMOTIDINE [Suspect]
     Route: 065
     Dates: start: 20110316, end: 20110316
  6. CELECOXIB [Suspect]
     Route: 048
     Dates: start: 20110321, end: 20110414
  7. METHYCOBAL [Concomitant]
     Route: 048
     Dates: start: 20110406
  8. LOXONIN [Concomitant]
     Route: 048
     Dates: start: 20110314
  9. NORVASC [Concomitant]
     Indication: HYPERTENSION
     Route: 048
     Dates: start: 20110314
  10. FERROUS CITRATE [Concomitant]
     Indication: ANAEMIA
     Route: 048
     Dates: start: 20110225, end: 20110326
  11. FAMOTIDINE [Suspect]
     Route: 065
     Dates: start: 20110316, end: 20110316
  12. SELBEX [Concomitant]
     Indication: PROPHYLAXIS AGAINST GASTROINTESTINAL ULCER
     Route: 048
     Dates: start: 20110314
  13. FLOMAX [Concomitant]
     Indication: INFECTION PROPHYLAXIS
     Route: 048
     Dates: start: 20110403, end: 20110427
  14. KETOPROFEN [Concomitant]
     Dosage: TAPE.
     Route: 065
     Dates: start: 20110225
  15. FAMOTIDINE [Suspect]
     Indication: GASTRITIS PROPHYLAXIS
     Route: 048
     Dates: start: 20110321, end: 20110414
  16. ZOLPIDEM [Suspect]
     Route: 048
     Dates: start: 20110315
  17. NEUROTROPIN [Concomitant]
     Route: 065
     Dates: start: 20110407, end: 20110416

REACTIONS (4)
  - PANCYTOPENIA [None]
  - POST PROCEDURAL INFECTION [None]
  - HEPATIC ENZYME INCREASED [None]
  - CHOLESTASIS [None]
